FAERS Safety Report 11342665 (Version 1)
Quarter: 2015Q3

REPORT INFORMATION
  Report Type: Report from Study
  Country: FR (occurrence: FR)
  Receive Date: 20150805
  Receipt Date: 20150805
  Transmission Date: 20151125
  Serious: Yes (Other)
  Sender: FDA-Public Use
  Company Number: FR-CELGENE-FRA-2015075913

PATIENT
  Sex: Male
  Weight: 60.5 kg

DRUGS (1)
  1. CC-5013 [Suspect]
     Active Substance: LENALIDOMIDE
     Indication: MYELODYSPLASTIC SYNDROME
     Dosage: 10 MILLIGRAM
     Route: 048
     Dates: start: 20110228, end: 20110725

REACTIONS (1)
  - Small cell lung cancer [Not Recovered/Not Resolved]
